FAERS Safety Report 18529054 (Version 2)
Quarter: 2020Q4

REPORT INFORMATION
  Report Type: Spontaneous
  Country: ES (occurrence: ES)
  Receive Date: 20201120
  Receipt Date: 20201211
  Transmission Date: 20210114
  Serious: Yes (Hospitalization, Other)
  Sender: FDA-Public Use
  Company Number: ES-009507513-2011ESP009431

PATIENT
  Age: 75 Year
  Sex: Male

DRUGS (3)
  1. SINEMET PLUS 25/100 MG COMPRIMIDOS [Suspect]
     Active Substance: CARBIDOPA\LEVODOPA
     Indication: CEREBRAL DISORDER
     Dosage: 0.5 DOSAGE FORM, QD (HALF TABLET DAILY, IN FIRST WEEK)
     Route: 048
     Dates: start: 20201104, end: 202011
  2. SINEMET PLUS 25/100 MG COMPRIMIDOS [Suspect]
     Active Substance: CARBIDOPA\LEVODOPA
     Indication: PROPHYLAXIS
     Dosage: 0.5 DOSAGE FORM, BID (HALF TABLET TWICE A DAY, IN SECOND WEEK)
     Route: 048
     Dates: start: 202011, end: 202011
  3. SINEMET PLUS 25/100 MG COMPRIMIDOS [Suspect]
     Active Substance: CARBIDOPA\LEVODOPA
     Dosage: 0.5 DOSAGE FORM, TID (HALF TABLET 3 TIMES A DAY (BREASKFAST, LUNCH AND DINNER), IN THIRD WEEK)
     Route: 048
     Dates: start: 202011, end: 20201108

REACTIONS (8)
  - Incorrect dose administered [Unknown]
  - Daydreaming [Recovering/Resolving]
  - Product prescribing issue [Unknown]
  - COVID-19 pneumonia [Recovering/Resolving]
  - Adverse event [Recovering/Resolving]
  - Product use in unapproved indication [Unknown]
  - Dysphonia [Recovering/Resolving]
  - Decreased appetite [Recovering/Resolving]

NARRATIVE: CASE EVENT DATE: 20201104
